FAERS Safety Report 7236641-6 (Version None)
Quarter: 2011Q1

REPORT INFORMATION
  Report Type: 
  Country: None (occurrence: None)
  Receive Date: 20110112
  Receipt Date: 20110103
  Transmission Date: 20110831
  Serious: Yes (Hospitalization)
  Sender: FDA-Public Use
  Company Number: IDA-00483

PATIENT
  Sex: Female

DRUGS (4)
  1. PROPRANOLOL [Suspect]
     Indication: ATRIAL FIBRILLATION
     Dosage: 160 MG DAILY ORAL
     Route: 048
     Dates: end: 20100416
  2. XALATAN [Concomitant]
  3. PREVISCAN (FLUINDIONE) [Concomitant]
  4. QUESTRAN [Concomitant]

REACTIONS (1)
  - THROMBOCYTOPENIA [None]
